FAERS Safety Report 9820593 (Version 1)
Quarter: 2013Q4

REPORT INFORMATION
  Report Type: Spontaneous
  Country: US (occurrence: None)
  Receive Date: 20131028
  Receipt Date: 20131028
  Transmission Date: 20140711
  Serious: No
  Sender: FDA-Public Use
  Company Number: 2013US001773

PATIENT
  Age: 62 Year
  Sex: Female
  Weight: 63 kg

DRUGS (1)
  1. ICLUSIG [Suspect]
     Indication: BREAST CANCER
     Route: 048
     Dates: start: 20130531

REACTIONS (2)
  - Off label use [None]
  - Rash erythematous [None]
